FAERS Safety Report 11185750 (Version 1)
Quarter: 2015Q2

REPORT INFORMATION
  Report Type: Spontaneous
  Country: US (occurrence: US)
  Receive Date: 20150612
  Receipt Date: 20150612
  Transmission Date: 20150821
  Serious: Yes (Hospitalization, Other)
  Sender: FDA-Public Use
  Company Number: US-GLAXOSMITHKLINE INC.-US2015GSK081813

PATIENT
  Sex: Female

DRUGS (2)
  1. WELLBUTRIN [Suspect]
     Active Substance: BUPROPION HYDROCHLORIDE
     Indication: PRODUCT USED FOR UNKNOWN INDICATION
     Dosage: UNK, U
     Route: 065
  2. PAXIL [Suspect]
     Active Substance: PAROXETINE HYDROCHLORIDE
     Indication: PRODUCT USED FOR UNKNOWN INDICATION
     Dosage: UNK, U
     Route: 065

REACTIONS (10)
  - Drug withdrawal syndrome [Unknown]
  - Hallucination [Unknown]
  - Bladder disorder [Unknown]
  - Ear disorder [Unknown]
  - Somnolence [Unknown]
  - Bacterial test positive [Unknown]
  - Head injury [Unknown]
  - Post-traumatic stress disorder [Unknown]
  - Renal disorder [Unknown]
  - Intentional self-injury [Unknown]
